FAERS Safety Report 24925362 (Version 3)
Quarter: 2025Q1

REPORT INFORMATION
  Report Type: Report from Study
  Country: US (occurrence: US)
  Receive Date: 20250204
  Receipt Date: 20250221
  Transmission Date: 20250408
  Serious: No
  Sender: ABBVIE
  Company Number: US-ABBVIE-6116983

PATIENT
  Age: 76 Year
  Sex: Female
  Weight: 47.627 kg

DRUGS (4)
  1. CREON [Suspect]
     Active Substance: PANCRELIPASE AMYLASE\PANCRELIPASE LIPASE\PANCRELIPASE PROTEASE
     Indication: Pancreatic cystadenoma
     Route: 048
     Dates: start: 20240605, end: 202410
  2. CREON [Suspect]
     Active Substance: PANCRELIPASE AMYLASE\PANCRELIPASE LIPASE\PANCRELIPASE PROTEASE
     Indication: Pancreatic cystadenoma
     Route: 048
     Dates: start: 20250131
  3. PANTOPRAZOLE [Concomitant]
     Active Substance: PANTOPRAZOLE
     Indication: Gastrooesophageal reflux disease
  4. VALACYCLOVIR [Concomitant]
     Active Substance: VALACYCLOVIR HYDROCHLORIDE
     Indication: Antiviral prophylaxis

REACTIONS (12)
  - Weight decreased [Not Recovered/Not Resolved]
  - Cough [Unknown]
  - Biliary tract disorder [Not Recovered/Not Resolved]
  - Constipation [Recovered/Resolved]
  - Procedural pain [Recovered/Resolved]
  - Pain [Recovered/Resolved]
  - Incision site pain [Recovered/Resolved]
  - Abdominal pain [Not Recovered/Not Resolved]
  - Weight gain poor [Not Recovered/Not Resolved]
  - Nausea [Not Recovered/Not Resolved]
  - Vomiting [Not Recovered/Not Resolved]
  - Dyschezia [Recovered/Resolved]

NARRATIVE: CASE EVENT DATE: 20240101
